FAERS Safety Report 6928220-2 (Version None)
Quarter: 2010Q3

REPORT INFORMATION
  Report Type: 
  Country: None (occurrence: None)
  Receive Date: 20100810
  Receipt Date: 20100727
  Transmission Date: 20110219
  Serious: Yes (Hospitalization, Other)
  Sender: FDA-Public Use
  Company Number: 016356

PATIENT
  Sex: Female

DRUGS (1)
  1. CIMZIA [Suspect]
     Dosage: (UNSPECIFIED SUBCUTANEOUS), (RESUMED CIMZIA SUBCUTANEOUS)
     Route: 058

REACTIONS (10)
  - ADHESION [None]
  - CELLULITIS [None]
  - ENTEROCOCCAL INFECTION [None]
  - POST PROCEDURAL COMPLICATION [None]
  - PROCEDURAL SITE REACTION [None]
  - PYODERMA GANGRENOSUM [None]
  - RECTAL HAEMORRHAGE [None]
  - SCAR [None]
  - SKIN MACERATION [None]
  - SURGICAL FAILURE [None]
